FAERS Safety Report 5595244-X (Version None)
Quarter: 2008Q1

REPORT INFORMATION
  Report Type: 
  Country: None (occurrence: None)
  Receive Date: 20080117
  Receipt Date: 20080107
  Transmission Date: 20080703
  Serious: Yes (Hospitalization)
  Sender: FDA-Public Use
  Company Number: NL-PFIZER INC-2008002453

PATIENT
  Sex: Female

DRUGS (6)
  1. AROMASIN [Suspect]
     Indication: BREAST CANCER
     Route: 048
  2. GLIMEPIRIDE [Concomitant]
  3. SIMVASTATIN [Concomitant]
  4. METOPROLOL TARTRATE [Concomitant]
  5. PSYLLIUM HYDROPHILIC MUCILLOID [Concomitant]
  6. MOVICOLON [Concomitant]

REACTIONS (2)
  - PULMONARY EMBOLISM [None]
  - RENAL IMPAIRMENT [None]
